FAERS Safety Report 12168321 (Version 1)
Quarter: 2016Q1

REPORT INFORMATION
  Report Type: Report from Study
  Country: BR (occurrence: BR)
  Receive Date: 20160310
  Receipt Date: 20160310
  Transmission Date: 20160526
  Serious: Yes (Other)
  Sender: FDA-Public Use
  Company Number: BR-B.I. PHARMACEUTICALS,INC./RIDGEFIELD-2015-BI-55171BR

PATIENT
  Age: 70 Year
  Sex: Male
  Weight: 72 kg

DRUGS (1)
  1. AFATINIB [Suspect]
     Active Substance: AFATINIB
     Indication: NON-SMALL CELL LUNG CANCER
     Dosage: 40 MG
     Route: 048
     Dates: start: 20150610, end: 20151202

REACTIONS (1)
  - Malignant neoplasm progression [Not Recovered/Not Resolved]

NARRATIVE: CASE EVENT DATE: 20151202
